FAERS Safety Report 10444455 (Version 2)
Quarter: 2014Q3

REPORT INFORMATION
  Report Type: Spontaneous
  Country: NL (occurrence: None)
  Receive Date: 20140908
  Receipt Date: 20140923
  Transmission Date: 20150326
  Serious: No
  Sender: FDA-Public Use
  Company Number: NGX_02552_2014

PATIENT
  Age: 40 Year
  Sex: Female

DRUGS (7)
  1. QUTENZA [Suspect]
     Active Substance: CAPSAICIN
     Indication: NEURALGIA
     Route: 062
     Dates: start: 20140818, end: 20140818
  2. IBUPROFEN. [Concomitant]
     Active Substance: IBUPROFEN
  3. AMITRIPTYLINE [Concomitant]
     Active Substance: AMITRIPTYLINE
  4. LYRICA [Concomitant]
     Active Substance: PREGABALIN
  5. PARACETAMOL [Concomitant]
     Active Substance: ACETAMINOPHEN
  6. TRAMADOL [Concomitant]
     Active Substance: TRAMADOL
  7. EMLA [Concomitant]
     Active Substance: LIDOCAINE\PRILOCAINE

REACTIONS (5)
  - Application site pain [None]
  - Application site vesicles [None]
  - Application site scar [None]
  - Application site discolouration [None]
  - Application site burn [None]
